FAERS Safety Report 5074046-7 (Version None)
Quarter: 2006Q3

REPORT INFORMATION
  Report Type: 
  Country: None (occurrence: None)
  Receive Date: 20060808
  Receipt Date: 20050629
  Transmission Date: 20061208
  Serious: No
  Sender: FDA-Public Use
  Company Number: US-AMGEN-KDL140976

PATIENT
  Sex: Female
  Weight: 86.7 kg

DRUGS (1)
  1. PROCRIT [Suspect]
     Indication: RENAL FAILURE CHRONIC
     Route: 058
     Dates: start: 20050623

REACTIONS (2)
  - CONDITION AGGRAVATED [None]
  - FATIGUE [None]
